FAERS Safety Report 5354424-9 (Version None)
Quarter: 2007Q2

REPORT INFORMATION
  Report Type: 
  Country: None (occurrence: None)
  Receive Date: 20070612
  Receipt Date: 20070531
  Transmission Date: 20071010
  Serious: Yes (Other)
  Sender: FDA-Public Use
  Company Number: AUWYE760531MAY07

PATIENT
  Sex: Female

DRUGS (1)
  1. EFFEXOR XR [Suspect]
     Indication: DEPRESSION
     Dosage: DELIBERATE OVERDOSE OF 5 X 75 MG CAPSULES
     Route: 048
     Dates: start: 20070531, end: 20070531

REACTIONS (7)
  - DEPRESSION [None]
  - DRUG WITHDRAWAL SYNDROME [None]
  - INTENTIONAL OVERDOSE [None]
  - MALAISE [None]
  - MYDRIASIS [None]
  - PALLOR [None]
  - SUICIDE ATTEMPT [None]
